FAERS Safety Report 20482966 (Version 7)
Quarter: 2022Q2

REPORT INFORMATION
  Report Type: Spontaneous
  Country: BR (occurrence: BR)
  Receive Date: 20220217
  Receipt Date: 20220621
  Transmission Date: 20220721
  Serious: Yes (Other)
  Sender: FDA-Public Use
  Company Number: BR-SA-SAC20220214001152

PATIENT
  Age: 71 Year
  Sex: Male
  Weight: 96 kg

DRUGS (7)
  1. LANTUS [Suspect]
     Active Substance: INSULIN GLARGINE
     Indication: Diabetes mellitus
     Dosage: UNK, BID
     Route: 065
  2. LANTUS [Suspect]
     Active Substance: INSULIN GLARGINE
     Dosage: 42 IU, QD
     Dates: start: 2017
  3. LANTUS [Suspect]
     Active Substance: INSULIN GLARGINE
     Dosage: 62 IU
  4. LANTUS [Suspect]
     Active Substance: INSULIN GLARGINE
     Dosage: 42 IU, QD
     Route: 058
     Dates: start: 2022
  5. BASAGLAR [Concomitant]
     Active Substance: INSULIN GLARGINE
     Dosage: 42 UNITS IN MORNING AND IF HE NEEDS 25 AT NIGHT
  6. APIDRA [Concomitant]
     Active Substance: INSULIN GLULISINE
     Dosage: 8 UNITS -10IU AT LUNCH
  7. NOVORAPID [Concomitant]
     Active Substance: INSULIN ASPART
     Dosage: 10 IU

REACTIONS (10)
  - Loss of consciousness [Not Recovered/Not Resolved]
  - Drug dependence [Unknown]
  - Blood glucose increased [Unknown]
  - Blood glucose decreased [Recovered/Resolved]
  - Malaise [Unknown]
  - Skin mass [Unknown]
  - Malaise [Not Recovered/Not Resolved]
  - Blood glucose fluctuation [Not Recovered/Not Resolved]
  - Inappropriate schedule of product administration [Unknown]
  - Blood glucose abnormal [Not Recovered/Not Resolved]

NARRATIVE: CASE EVENT DATE: 20210101
